FAERS Safety Report 5327044-X (Version None)
Quarter: 2007Q2

REPORT INFORMATION
  Report Type: 
  Country: None (occurrence: None)
  Receive Date: 20070517
  Receipt Date: 20070510
  Transmission Date: 20071010
  Serious: Yes (Other)
  Sender: FDA-Public Use
  Company Number: PHEH2007US07225

PATIENT
  Age: 56 Year
  Sex: Male
  Weight: 84.353 kg

DRUGS (2)
  1. ALIMTA [Concomitant]
  2. ZOMETA [Suspect]
     Dosage: 4 MG MONTHLY
     Route: 042

REACTIONS (3)
  - GINGIVITIS [None]
  - OSTEONECROSIS [None]
  - TOOTHACHE [None]
